FAERS Safety Report 10896197 (Version 1)
Quarter: 2015Q1

REPORT INFORMATION
  Report Type: Spontaneous
  Country: HR (occurrence: HR)
  Receive Date: 20150309
  Receipt Date: 20150309
  Transmission Date: 20150721
  Serious: Yes (Other)
  Sender: FDA-Public Use
  Company Number: HR-009507513-1503HRV002224

PATIENT
  Age: 45 Year
  Sex: Female
  Weight: 95 kg

DRUGS (2)
  1. AERIUS [Concomitant]
     Active Substance: DESLORATADINE
     Indication: RHINITIS ALLERGIC
     Dosage: 1X1 TBL IN THE MORNING
     Route: 048
     Dates: start: 2010, end: 2013
  2. SINGULAIR [Suspect]
     Active Substance: MONTELUKAST SODIUM
     Indication: RHINITIS ALLERGIC
     Dosage: 1X1 TBL IN THE EVENING
     Route: 048
     Dates: start: 201005, end: 201007

REACTIONS (3)
  - Depression [Recovered/Resolved]
  - Anxiety [Recovered/Resolved]
  - Suicidal ideation [Recovered/Resolved]

NARRATIVE: CASE EVENT DATE: 201005
